FAERS Safety Report 19650968 (Version 4)
Quarter: 2021Q3

REPORT INFORMATION
  Report Type: Spontaneous
  Country: US (occurrence: US)
  Receive Date: 20210803
  Receipt Date: 20210902
  Transmission Date: 20211014
  Serious: Yes (Death, Life-Threatening, Hospitalization)
  Sender: FDA-Public Use
  Company Number: US-CELGENEUS-USA-20210707392

PATIENT
  Age: 81 Year
  Sex: Male
  Weight: 92.1 kg

DRUGS (6)
  1. VENETOCLAX. [Suspect]
     Active Substance: VENETOCLAX
     Indication: ACUTE MYELOID LEUKAEMIA
     Dosage: 100 MILLIGRAM
     Route: 048
     Dates: start: 20210723, end: 20210723
  2. SODIUM CHLORIDE. [Concomitant]
     Active Substance: SODIUM CHLORIDE
     Indication: PROPHYLAXIS
     Route: 065
  3. AZACITIDINE. [Suspect]
     Active Substance: AZACITIDINE
     Indication: ACUTE MYELOID LEUKAEMIA
     Dosage: 75 MILLIGRAM/SQ. METER
     Route: 058
     Dates: start: 20210723, end: 20210723
  4. NORMAL SALINE [Concomitant]
     Active Substance: SODIUM CHLORIDE
     Indication: PROPHYLAXIS
     Route: 048
     Dates: start: 20210720, end: 20210723
  5. LEMZOPARLIMAB. [Suspect]
     Active Substance: LEMZOPARLIMAB
     Indication: ACUTE MYELOID LEUKAEMIA
     Dosage: 263.1429 MILLIGRAM
     Route: 041
     Dates: start: 20210723, end: 20210723
  6. SODIUM CHLORIDE. [Concomitant]
     Active Substance: SODIUM CHLORIDE
     Dosage: 75ML/H
     Route: 065
     Dates: start: 20210720, end: 20210723

REACTIONS (1)
  - Tumour lysis syndrome [Fatal]

NARRATIVE: CASE EVENT DATE: 20210723
